FAERS Safety Report 4926293-X (Version None)
Quarter: 2006Q1

REPORT INFORMATION
  Report Type: 
  Country: None (occurrence: None)
  Receive Date: 20060228
  Receipt Date: 20050124
  Transmission Date: 20060701
  Serious: No
  Sender: FDA-Public Use
  Company Number: US-GLAXOSMITHKLINE-A0590730A

PATIENT
  Sex: Female

DRUGS (3)
  1. LAMICTAL [Suspect]
     Dosage: 250MG PER DAY
     Route: 048
  2. CYMBALTA [Concomitant]
  3. LUNESTA [Concomitant]

REACTIONS (3)
  - CRYING [None]
  - EMOTIONAL DISORDER [None]
  - MEMORY IMPAIRMENT [None]
